FAERS Safety Report 4855693-1 (Version None)
Quarter: 2005Q4

REPORT INFORMATION
  Report Type: 
  Country: None (occurrence: None)
  Receive Date: 20051214
  Receipt Date: 20051128
  Transmission Date: 20060501
  Serious: Yes (Death)
  Sender: FDA-Public Use
  Company Number: NL200511002982

PATIENT
  Age: 70 Year
  Sex: Male

DRUGS (5)
  1. SOMATROPIN (SOMATROPIN) VIAL [Suspect]
     Indication: GROWTH HORMONE DEFICIENCY
     Dosage: SUBCUTANEOUS
     Route: 058
  2. DEPAKENE [Concomitant]
  3. HYDROCORTISONE [Concomitant]
  4. LEVOTHYROXINE SODIUM [Concomitant]
  5. SUSTANON (TESTOSTERONE CAPRINOYLACETATE, TESTOSTEORNE ISOCAPROATE, TES [Concomitant]

REACTIONS (2)
  - CONDITION AGGRAVATED [None]
  - GLIOBLASTOMA MULTIFORME [None]
